FAERS Safety Report 13734728 (Version 3)
Quarter: 2018Q2

REPORT INFORMATION
  Report Type: Report from Study
  Country: None (occurrence: US)
  Receive Date: 20170710
  Receipt Date: 20180403
  Transmission Date: 20180711
  Serious: Yes (Hospitalization, Other)
  Sender: FDA-Public Use
  Company Number: US-ABBVIE-17K-163-1964691-00

PATIENT
  Age: 29 Year
  Sex: Female

DRUGS (3)
  1. HUMIRA [Suspect]
     Active Substance: ADALIMUMAB
     Indication: CROHN^S DISEASE
     Route: 058
     Dates: start: 20150203, end: 201612
  2. AZATHIOPRINE. [Concomitant]
     Active Substance: AZATHIOPRINE
     Indication: PRODUCT USED FOR UNKNOWN INDICATION
  3. HUMIRA [Suspect]
     Active Substance: ADALIMUMAB
     Route: 058
     Dates: start: 201612, end: 2017

REACTIONS (10)
  - Crohn^s disease [Recovered/Resolved]
  - Dermatitis acneiform [Not Recovered/Not Resolved]
  - Nausea [Recovering/Resolving]
  - Intestinal stenosis [Recovered/Resolved]
  - Abdominal pain [Recovering/Resolving]
  - Ileal perforation [Recovered/Resolved]
  - Crohn^s disease [Recovered/Resolved]
  - Constipation [Recovering/Resolving]
  - Fatigue [Recovering/Resolving]
  - Drug ineffective [Not Recovered/Not Resolved]

NARRATIVE: CASE EVENT DATE: 201612
